FAERS Safety Report 6122436-3 (Version None)
Quarter: 2009Q1

REPORT INFORMATION
  Report Type: 
  Country: None (occurrence: None)
  Receive Date: 20090312
  Receipt Date: 20090305
  Transmission Date: 20090719
  Serious: Yes (Death)
  Sender: FDA-Public Use
  Company Number: THYM-1000938

PATIENT
  Age: 37 Year
  Sex: Male

DRUGS (4)
  1. THYMOGLOBULIN [Suspect]
     Indication: BONE MARROW DISORDER
  2. CYCLOSPORINE [Suspect]
     Indication: PROPHYLAXIS
  3. CYCLOPHOSPHAMIDE [Suspect]
     Indication: BONE MARROW DISORDER
  4. FLUDARABINE PHOSPHATE [Suspect]
     Indication: BONE MARROW DISORDER

REACTIONS (2)
  - ACUTE GRAFT VERSUS HOST DISEASE [None]
  - EPSTEIN-BARR VIRUS ASSOCIATED LYMPHOPROLIFERATIVE DISORDER [None]
